FAERS Safety Report 19379311 (Version 4)
Quarter: 2022Q1

REPORT INFORMATION
  Report Type: Spontaneous
  Country: US (occurrence: US)
  Receive Date: 20210607
  Receipt Date: 20220331
  Transmission Date: 20220423
  Serious: No
  Sender: FDA-Public Use
  Company Number: US-SA-2021SA187449

PATIENT
  Age: 21 Year
  Sex: Female

DRUGS (1)
  1. DUPILUMAB [Suspect]
     Active Substance: DUPILUMAB
     Indication: Dermatitis atopic
     Dosage: 300 MG, QOW
     Route: 058
     Dates: start: 20200219

REACTIONS (5)
  - Swelling [Unknown]
  - Contusion [Unknown]
  - Dry eye [Unknown]
  - Injection site reaction [Recovered/Resolved]
  - Condition aggravated [Unknown]
